FAERS Safety Report 8086913-0 (Version None)
Quarter: 2012Q1

REPORT INFORMATION
  Report Type: 
  Country: None (occurrence: None)
  Receive Date: 20120128
  Receipt Date: 20110615
  Transmission Date: 20120608
  Serious: No
  Sender: FDA-Public Use
  Company Number: US-ABBOTT-11P-163-0732504-00

PATIENT
  Sex: Male
  Weight: 91.708 kg

DRUGS (5)
  1. LEXAPRO [Concomitant]
     Indication: ARTHRALGIA
  2. HUMIRA [Suspect]
     Indication: RHEUMATOID ARTHRITIS
     Dates: start: 20100701, end: 20110101
  3. THYROID MEDICATION [Concomitant]
     Indication: HYPOTHYROIDISM
  4. HUMIRA [Suspect]
     Dates: start: 20110201, end: 20110501
  5. HUMIRA [Suspect]
     Dates: start: 20110601

REACTIONS (3)
  - DEFORMITY [None]
  - ARTHRITIS [None]
  - DRUG INEFFECTIVE [None]
